FAERS Safety Report 6235832-0 (Version None)
Quarter: 2009Q2

REPORT INFORMATION
  Report Type: 
  Country: None (occurrence: None)
  Receive Date: 20090617
  Receipt Date: 20090617
  Transmission Date: 20091009
  Serious: Yes (Other)
  Sender: FDA-Public Use
  Company Number: None

PATIENT
  Age: 35 Year
  Sex: Female
  Weight: 75.2971 kg

DRUGS (2)
  1. ZICAM COLD REMEDY NASAL GEL .50 FL. OZ./ 15 ML. MATRIXX INITIATIVES, I [Suspect]
     Indication: NASAL CONGESTION
     Dosage: I SPRAY EACH NOSTRIL 3 TIMES A DAY NASAL
     Route: 045
     Dates: start: 20080801, end: 20090301
  2. ZICAM COLD REMEDY NASAL GEL .50 FL. OZ./ 15 ML. MATRIXX INITIATIVES, I [Suspect]
     Indication: NASOPHARYNGITIS
     Dosage: I SPRAY EACH NOSTRIL 3 TIMES A DAY NASAL
     Route: 045
     Dates: start: 20080801, end: 20090301

REACTIONS (3)
  - AGEUSIA [None]
  - ANOSMIA [None]
  - PRODUCT QUALITY ISSUE [None]
